FAERS Safety Report 6980216-0 (Version None)
Quarter: 2010Q3

REPORT INFORMATION
  Report Type: 
  Country: None (occurrence: None)
  Receive Date: 20100824
  Receipt Date: 20100628
  Transmission Date: 20110219
  Serious: No
  Sender: FDA-Public Use
  Company Number: 310878

PATIENT
  Age: 71 Year
  Sex: Male

DRUGS (2)
  1. VICTOZA [Suspect]
     Indication: METABOLIC SYNDROME
     Dosage: SUBCUTANEOUS
     Route: 058
  2. VICTOZA [Suspect]
     Indication: OFF LABEL USE
     Dosage: SUBCUTANEOUS
     Route: 058

REACTIONS (2)
  - DYSGEUSIA [None]
  - THERAPEUTIC RESPONSE UNEXPECTED [None]
